FAERS Safety Report 5339570-8 (Version None)
Quarter: 2007Q2

REPORT INFORMATION
  Report Type: 
  Country: None (occurrence: None)
  Receive Date: 20070521
  Receipt Date: 20070510
  Transmission Date: 20071010
  Serious: Yes (Other)
  Sender: FDA-Public Use
  Company Number: B0471243A

PATIENT
  Age: 10 Year
  Sex: Female

DRUGS (9)
  1. DIGOXIN [Suspect]
     Dosage: .25 MG / PER DAY
  2. FLUTICASONE+SALMETEROL [Concomitant]
  3. IMMUNE GLOBULIN INTRAVENOUS (HUMAN) [Concomitant]
  4. DOPAMINE HCL [Concomitant]
  5. DOBUTAMINE HCL [Concomitant]
  6. SPIRONOLACTONE [Concomitant]
  7. FRUSEMIDE [Concomitant]
  8. ENALAPRIL MALEATE [Concomitant]
  9. ASPIRIN [Concomitant]

REACTIONS (8)
  - ABDOMINAL PAIN [None]
  - BLOOD POTASSIUM INCREASED [None]
  - NAUSEA [None]
  - RESPIRATORY RATE INCREASED [None]
  - SINUS BRADYCARDIA [None]
  - THERAPEUTIC AGENT TOXICITY [None]
  - VENTRICULAR EXTRASYSTOLES [None]
  - VOMITING [None]
